FAERS Safety Report 4663165-2 (Version None)
Quarter: 2005Q2

REPORT INFORMATION
  Report Type: 
  Country: None (occurrence: None)
  Receive Date: 20050513
  Receipt Date: 20050429
  Transmission Date: 20051028
  Serious: No
  Sender: FDA-Public Use
  Company Number: ABVAF-05-0203

PATIENT
  Age: 63 Year
  Sex: Female
  Weight: 57.1532 kg

DRUGS (6)
  1. ABRAXANE [Suspect]
     Indication: BREAST CANCER METASTATIC
     Dosage: 162 MG (1000 MG/M2, EVERY 4 WEEKS) INTRAVENOUSDRIP
     Route: 041
     Dates: start: 20050322
  2. LIPITOR [Concomitant]
  3. DETROL LA [Concomitant]
  4. AVANDIA [Concomitant]
  5. PREVACID [Concomitant]
  6. CARBOPLATIN [Concomitant]

REACTIONS (2)
  - CANCER PAIN [None]
  - METASTATIC NEOPLASM [None]
